FAERS Safety Report 4986836-7 (Version None)
Quarter: 2006Q2

REPORT INFORMATION
  Report Type: 
  Country: None (occurrence: None)
  Receive Date: 20060428
  Receipt Date: 20050823
  Transmission Date: 20061013
  Serious: Yes (Hospitalization, Disabling)
  Sender: FDA-Public Use
  Company Number: US-MERCK-0508USA03912

PATIENT
  Age: 49 Year
  Sex: Female
  Weight: 91 kg

DRUGS (22)
  1. VIOXX [Suspect]
     Indication: CARPAL TUNNEL SYNDROME
     Route: 048
     Dates: start: 19991101
  2. VIOXX [Suspect]
     Route: 048
     Dates: end: 20040915
  3. VIOXX [Suspect]
     Indication: OSTEOARTHRITIS
     Route: 048
     Dates: start: 19991101
  4. VIOXX [Suspect]
     Route: 048
     Dates: end: 20040915
  5. ESTRACE [Concomitant]
     Indication: HORMONE REPLACEMENT THERAPY
     Route: 048
  6. LOPRESSOR [Concomitant]
     Route: 065
  7. AMERGE [Concomitant]
     Indication: MIGRAINE
     Route: 048
  8. EXCEDRIN (MIGRAINE) [Concomitant]
     Indication: MIGRAINE
     Route: 065
  9. CIPROFLOXACIN HCL [Concomitant]
     Indication: DIVERTICULUM
     Route: 048
  10. NORFLEX [Concomitant]
     Indication: MUSCLE TIGHTNESS
     Route: 048
  11. TEGRETOL-XR [Concomitant]
     Indication: NEURALGIA
     Route: 048
  12. VICODIN [Concomitant]
     Indication: NECK PAIN
     Route: 048
  13. VICODIN [Concomitant]
     Indication: BACK PAIN
     Route: 048
  14. ALLEGRA [Concomitant]
     Indication: SEASONAL ALLERGY
     Route: 048
  15. PREVACID [Concomitant]
     Indication: GASTROOESOPHAGEAL REFLUX DISEASE
     Route: 048
  16. VENTOLIN [Concomitant]
     Indication: ASTHMA
     Route: 055
  17. FLOVENT [Concomitant]
     Indication: ASTHMA
     Route: 055
  18. ZANTAC [Concomitant]
     Indication: HYPERCHLORHYDRIA
     Route: 048
  19. NORVASC [Concomitant]
     Indication: HYPERTENSION
     Route: 048
  20. NAPROXEN [Concomitant]
     Indication: PAIN
     Route: 048
     Dates: start: 19860101, end: 19990101
  21. NAPROXEN [Concomitant]
     Indication: INFLAMMATION
     Route: 048
     Dates: start: 19860101, end: 19990101
  22. ASPIRIN [Concomitant]
     Indication: ANTICOAGULANT THERAPY
     Route: 048

REACTIONS (39)
  - ABDOMINAL PAIN [None]
  - ABDOMINAL PAIN LOWER [None]
  - ACUTE CORONARY SYNDROME [None]
  - ACUTE MYOCARDIAL INFARCTION [None]
  - ACUTE SINUSITIS [None]
  - ANGINA PECTORIS [None]
  - ARTHRALGIA [None]
  - BACK PAIN [None]
  - BRAIN NATRIURETIC PEPTIDE INCREASED [None]
  - BREAST FIBROMA [None]
  - CARDIAC FAILURE CONGESTIVE [None]
  - CHEST PAIN [None]
  - CONCUSSION [None]
  - CORONARY ARTERY DISEASE [None]
  - DEPRESSION [None]
  - DERMATITIS CONTACT [None]
  - DIARRHOEA [None]
  - DIZZINESS [None]
  - DYSPNOEA [None]
  - EPISTAXIS [None]
  - FACIAL PAIN [None]
  - FALL [None]
  - GASTROINTESTINAL HAEMORRHAGE [None]
  - HEADACHE [None]
  - INCREASED TENDENCY TO BRUISE [None]
  - MIGRAINE [None]
  - MUSCLE SPASMS [None]
  - MYOCARDIAL ISCHAEMIA [None]
  - NAUSEA [None]
  - NECK PAIN [None]
  - PRESCRIBED OVERDOSE [None]
  - RECTAL HAEMORRHAGE [None]
  - REVERSIBLE AIRWAYS OBSTRUCTION [None]
  - STRESS [None]
  - THINKING ABNORMAL [None]
  - TINNITUS [None]
  - VIRAL INFECTION [None]
  - VISION BLURRED [None]
  - WEIGHT DECREASED [None]
